FAERS Safety Report 6959700-1 (Version None)
Quarter: 2010Q3

REPORT INFORMATION
  Report Type: 
  Country: None (occurrence: None)
  Receive Date: 20100901
  Receipt Date: 20100823
  Transmission Date: 20110219
  Serious: Yes (Hospitalization)
  Sender: FDA-Public Use
  Company Number: US-BIOGENIDEC-2007BI024292

PATIENT
  Age: 59 Year
  Sex: Male

DRUGS (2)
  1. AVONEX [Suspect]
     Indication: MULTIPLE SCLEROSIS
     Route: 030
     Dates: start: 20061018
  2. AVONEX [Suspect]
     Route: 030
     Dates: start: 20020202

REACTIONS (3)
  - INFECTED SKIN ULCER [None]
  - INTESTINAL OBSTRUCTION [None]
  - WOUND INFECTION STAPHYLOCOCCAL [None]
